FAERS Safety Report 4759206-4 (Version None)
Quarter: 2005Q3

REPORT INFORMATION
  Report Type: 
  Country: None (occurrence: None)
  Receive Date: 20050901
  Receipt Date: 20050621
  Transmission Date: 20060218
  Serious: Yes (Other)
  Sender: FDA-Public Use
  Company Number: US-JNJFOC-20050700223

PATIENT
  Sex: Female
  Weight: 72.58 kg

DRUGS (10)
  1. MOTRIN [Suspect]
     Indication: TENDONITIS
     Dosage: 600 MG AND 800 MG PRN
     Route: 048
  2. IBUPROFEN [Suspect]
     Indication: TENDONITIS
     Dosage: 600 AND 800 MG PRN
     Route: 048
  3. XANAX [Suspect]
     Indication: DEPRESSION
     Route: 048
  4. XANAX [Suspect]
     Indication: ANXIETY
     Dosage: AS NEEDED, THEN ON A REGULAR BASIS
     Route: 048
  5. BEXTRA [Suspect]
     Indication: TENDONITIS
     Route: 048
  6. BEXTRA [Suspect]
     Route: 048
  7. CELEBREX [Suspect]
     Indication: TENDONITIS
     Route: 048
  8. CELEXA [Concomitant]
  9. HYDROCHLOROTHIAZIDE [Concomitant]
  10. TYLENOL W/ CODEINE [Concomitant]

REACTIONS (30)
  - AGGRESSION [None]
  - AGITATION [None]
  - APHAGIA [None]
  - CEREBROVASCULAR ACCIDENT [None]
  - CHEST PAIN [None]
  - CLUMSINESS [None]
  - COLD SWEAT [None]
  - CONVULSION [None]
  - DIARRHOEA [None]
  - DISORIENTATION [None]
  - DIZZINESS [None]
  - DRUG WITHDRAWAL SYNDROME [None]
  - DYSGEUSIA [None]
  - DYSPHEMIA [None]
  - FALL [None]
  - FATIGUE [None]
  - FEEDING DISORDER [None]
  - HALLUCINATION, AUDITORY [None]
  - HYPOGLYCAEMIA [None]
  - LOSS OF CONSCIOUSNESS [None]
  - MIGRAINE [None]
  - NAUSEA [None]
  - NERVOUSNESS [None]
  - PARANOIA [None]
  - POST-TRAUMATIC STRESS DISORDER [None]
  - RETCHING [None]
  - TENDONITIS [None]
  - TINNITUS [None]
  - VOMITING [None]
  - WEIGHT DECREASED [None]
